FAERS Safety Report 19761059 (Version 3)
Quarter: 2021Q3

REPORT INFORMATION
  Report Type: Spontaneous
  Country: JP (occurrence: JP)
  Receive Date: 20210830
  Receipt Date: 20210915
  Transmission Date: 20211014
  Serious: Yes (Hospitalization)
  Sender: FDA-Public Use
  Company Number: JP-GLAXOSMITHKLINE-JP2021179020

PATIENT
  Age: 56 Year
  Sex: Male

DRUGS (22)
  1. TRELEGY ELLIPTA [Suspect]
     Active Substance: FLUTICASONE FUROATE\UMECLIDINIUM BROMIDE\VILANTEROL TRIFENATATE
     Indication: ASTHMA
     Dosage: 200 ?G
  2. ZYLORIC [Concomitant]
     Active Substance: ALLOPURINOL
     Dosage: UNK
  3. LAMICTAL [Concomitant]
     Active Substance: LAMOTRIGINE
     Dosage: UNK
  4. SULTANOL [Concomitant]
     Active Substance: ALBUTEROL SULFATE
     Indication: ASTHMA
     Dosage: UNK
  5. NEXIUM [Concomitant]
     Active Substance: ESOMEPRAZOLE MAGNESIUM
     Dosage: UNK
  6. LOPEMIN [Concomitant]
     Dosage: UNK
  7. LEXOTAN [Concomitant]
     Active Substance: BROMAZEPAM
     Dosage: UNK
  8. BETANIS [Concomitant]
     Active Substance: MIRABEGRON
     Dosage: UNK
  9. LIMAS [Concomitant]
     Active Substance: LITHIUM CARBONATE
     Dosage: UNK
  10. VOLTAREN [Concomitant]
     Active Substance: DICLOFENAC SODIUM
     Dosage: UNK
  11. ACOFIDE [Concomitant]
     Active Substance: ACOTIAMIDE HYDROCHLORIDE
     Dosage: UNK
  12. METOCLOPRAMIDE. [Concomitant]
     Active Substance: METOCLOPRAMIDE
     Dosage: UNK
  13. BEZATATE [Concomitant]
     Active Substance: BEZAFIBRATE
     Dosage: UNK
  14. PLAVIX [Concomitant]
     Active Substance: CLOPIDOGREL BISULFATE
     Dosage: UNK
  15. HALCION [Concomitant]
     Active Substance: TRIAZOLAM
     Dosage: UNK
  16. DESALEX [Concomitant]
     Active Substance: DESLORATADINE
     Indication: ASTHMA
     Dosage: UNK
  17. TAKECAB [Concomitant]
     Active Substance: VONOPRAZAN FUMARATE
     Dosage: UNK
  18. URSO [Concomitant]
     Active Substance: URSODIOL
     Dosage: UNK
  19. BAYASPIRIN [Concomitant]
     Active Substance: ASPIRIN
     Dosage: UNK
  20. ADALAT [Concomitant]
     Active Substance: NIFEDIPINE
  21. KIPRES [Concomitant]
     Active Substance: MONTELUKAST SODIUM
     Indication: ASTHMA
     Dosage: UNK
  22. FLUNITRAZEPAM [Concomitant]
     Active Substance: FLUNITRAZEPAM
     Dosage: UNK

REACTIONS (1)
  - Hospitalisation [Unknown]
